FAERS Safety Report 16777699 (Version 7)
Quarter: 2020Q2

REPORT INFORMATION
  Report Type: Report from Study
  Country: US (occurrence: US)
  Receive Date: 20190905
  Receipt Date: 20200520
  Transmission Date: 20200713
  Serious: No
  Sender: FDA-Public Use
  Company Number: US-SAGE-2019SAGE000027

PATIENT

DRUGS (1)
  1. ZULRESSO [Suspect]
     Active Substance: BREXANOLONE
     Indication: PERINATAL DEPRESSION
     Dosage: UNK
     Route: 042
     Dates: start: 20190801, end: 20190804

REACTIONS (13)
  - Product use complaint [Recovered/Resolved]
  - Hormone level abnormal [Recovered/Resolved]
  - Fatigue [Recovered/Resolved]
  - Sleep terror [Recovered/Resolved]
  - Anxiety [Not Recovered/Not Resolved]
  - Menstruation irregular [Recovered/Resolved]
  - Device infusion issue [Recovered/Resolved]
  - Intrusive thoughts [Recovered/Resolved]
  - Somnolence [Recovered/Resolved]
  - Heart rate decreased [Recovered/Resolved]
  - Insomnia [Recovered/Resolved]
  - Panic disorder [Recovered/Resolved]
  - Middle insomnia [Recovered/Resolved]

NARRATIVE: CASE EVENT DATE: 201908
